FAERS Safety Report 21636951 (Version 1)
Quarter: 2022Q4

REPORT INFORMATION
  Report Type: Spontaneous
  Country: IN (occurrence: IN)
  Receive Date: 20221124
  Receipt Date: 20221124
  Transmission Date: 20230113
  Serious: Yes (Other)
  Sender: FDA-Public Use
  Company Number: IN-ALKEM LABORATORIES LIMITED-IN-ALKEM-2022-13098

PATIENT
  Age: 2 Year
  Sex: Male

DRUGS (25)
  1. ISONIAZID [Suspect]
     Active Substance: ISONIAZID
     Indication: Meningitis tuberculous
     Dosage: 10 MILLIGRAM/KILOGRAM (INITIATION PHASE)
     Route: 065
  2. ISONIAZID [Suspect]
     Active Substance: ISONIAZID
     Indication: Bone tuberculosis
     Dosage: 10 MILLIGRAM/KILOGRAM (CONTINUATION PHASE)
     Route: 065
  3. RIFAMPIN [Suspect]
     Active Substance: RIFAMPIN
     Indication: Meningitis tuberculous
     Dosage: 30 MILLIGRAM/KILOGRAM (INITIATION PHASE)
     Route: 065
  4. RIFAMPIN [Suspect]
     Active Substance: RIFAMPIN
     Indication: Bone tuberculosis
     Dosage: 15 MILLIGRAM/KILOGRAM (CONTINUATION PHASE)
     Route: 065
  5. PYRAZINAMIDE [Concomitant]
     Active Substance: PYRAZINAMIDE
     Indication: Meningitis tuberculous
     Dosage: 35 MILLIGRAM/KILOGRAM
     Route: 065
  6. PYRAZINAMIDE [Concomitant]
     Active Substance: PYRAZINAMIDE
     Indication: Bone tuberculosis
     Dosage: 25 MILLIGRAM/KILOGRAM
     Route: 065
  7. PYRAZINAMIDE [Concomitant]
     Active Substance: PYRAZINAMIDE
     Indication: Tuberculosis
  8. ETHAMBUTOL [Concomitant]
     Active Substance: ETHAMBUTOL HYDROCHLORIDE
     Indication: Meningitis tuberculous
     Dosage: 20 MILLIGRAM/KILOGRAM
     Route: 065
  9. ETHAMBUTOL [Concomitant]
     Active Substance: ETHAMBUTOL HYDROCHLORIDE
     Indication: Bone tuberculosis
     Dosage: 15 MILLIGRAM/KILOGRAM
     Route: 065
  10. ETHAMBUTOL [Concomitant]
     Active Substance: ETHAMBUTOL HYDROCHLORIDE
     Indication: Tuberculosis
  11. PREDNISOLONE [Concomitant]
     Active Substance: PREDNISOLONE
     Indication: Meningitis tuberculous
     Dosage: UNK
     Route: 065
  12. PREDNISOLONE [Concomitant]
     Active Substance: PREDNISOLONE
     Indication: Bone tuberculosis
     Dosage: UNK (TAPERED DOSE)
     Route: 065
  13. LEVOFLOXACIN [Concomitant]
     Active Substance: LEVOFLOXACIN
     Indication: Meningitis tuberculous
     Dosage: 10 MILLILITRE PER KILOGRAM
     Route: 065
  14. LEVOFLOXACIN [Concomitant]
     Active Substance: LEVOFLOXACIN
     Indication: Bone tuberculosis
  15. LEVOFLOXACIN [Concomitant]
     Active Substance: LEVOFLOXACIN
     Indication: Tuberculosis
  16. ETHIONAMIDE [Concomitant]
     Active Substance: ETHIONAMIDE
     Indication: Meningitis tuberculous
     Dosage: 15 MILLILITRE PER KILOGRAM
     Route: 065
  17. ETHIONAMIDE [Concomitant]
     Active Substance: ETHIONAMIDE
     Indication: Bone tuberculosis
  18. ETHIONAMIDE [Concomitant]
     Active Substance: ETHIONAMIDE
     Indication: Tuberculosis
  19. CYCLOSERINE [Concomitant]
     Active Substance: CYCLOSERINE
     Indication: Meningitis tuberculous
     Dosage: 15 MILLIGRAM/KILOGRAM
     Route: 065
  20. CYCLOSERINE [Concomitant]
     Active Substance: CYCLOSERINE
     Indication: Bone tuberculosis
  21. CYCLOSERINE [Concomitant]
     Active Substance: CYCLOSERINE
     Indication: Tuberculosis
  22. KANAMYCIN [Concomitant]
     Active Substance: KANAMYCIN A SULFATE
     Indication: Meningitis tuberculous
     Dosage: 15 MILLIGRAM/KILOGRAM
     Route: 065
  23. KANAMYCIN [Concomitant]
     Active Substance: KANAMYCIN A SULFATE
     Indication: Bone tuberculosis
  24. KANAMYCIN [Concomitant]
     Active Substance: KANAMYCIN A SULFATE
     Indication: Tuberculosis
  25. MEROPENEM [Concomitant]
     Active Substance: MEROPENEM
     Indication: Pseudomonas infection
     Dosage: UNK
     Route: 042

REACTIONS (1)
  - Drug resistance [Unknown]
